FAERS Safety Report 8155997-3 (Version None)
Quarter: 2012Q1

REPORT INFORMATION
  Report Type: 
  Country: None (occurrence: None)
  Receive Date: 20120222
  Receipt Date: 20120217
  Transmission Date: 20120608
  Serious: Yes (Death, Hospitalization)
  Sender: FDA-Public Use
  Company Number: US-ASTELLAS-2012US001886

PATIENT
  Sex: Male
  Weight: 53 kg

DRUGS (1)
  1. PROGRAF [Suspect]
     Indication: LUNG TRANSPLANT
     Dosage: 1 MG, UID/QD
     Route: 048

REACTIONS (4)
  - FEBRILE NEUTROPENIA [None]
  - SEPTIC SHOCK [None]
  - OFF LABEL USE [None]
  - HOSPITALISATION [None]
